FAERS Safety Report 6899239-5 (Version None)
Quarter: 2010Q3

REPORT INFORMATION
  Report Type: 
  Country: None (occurrence: None)
  Receive Date: 20100802
  Receipt Date: 20080328
  Transmission Date: 20110219
  Serious: No
  Sender: FDA-Public Use
  Company Number: US-PFIZER INC-2007062477

PATIENT
  Sex: Female
  Weight: 47.6 kg

DRUGS (6)
  1. LYRICA [Suspect]
     Indication: FIBROMYALGIA
     Dates: start: 20070724
  2. LYRICA [Suspect]
     Indication: SLEEP DISORDER
  3. LYRICA [Suspect]
     Indication: CHRONIC FATIGUE SYNDROME
  4. LEXAPRO [Concomitant]
  5. KLONOPIN [Concomitant]
     Route: 048
  6. ELAVIL [Concomitant]
     Route: 048

REACTIONS (7)
  - AGITATION [None]
  - ANXIETY [None]
  - CONFUSIONAL STATE [None]
  - DISTURBANCE IN ATTENTION [None]
  - EMOTIONAL DISORDER [None]
  - FEELING ABNORMAL [None]
  - MALAISE [None]
